FAERS Safety Report 8431617-5 (Version None)
Quarter: 2012Q2

REPORT INFORMATION
  Report Type: 
  Country: None (occurrence: None)
  Receive Date: 20120323
  Receipt Date: 20111115
  Transmission Date: 20120825
  Serious: Yes (Hospitalization, Other)
  Sender: FDA-Public Use
  Company Number: 163-21880-11063597

PATIENT
  Age: 74 Year
  Sex: Male

DRUGS (24)
  1. DIGOXIN (DIGOXIN) (TABLETS) [Concomitant]
  2. SYNTHROID [Concomitant]
  3. ACETAMINOPHEN (PARACETAMOL) (TABLETS) [Concomitant]
  4. ADVAIR DISKUS (SERETIDE MITE) (INHALANT) [Concomitant]
  5. IRON (IRON) (UNKNOWN) [Concomitant]
  6. SPIRIVA [Concomitant]
  7. EMLA (EMLA) (CREAM) [Concomitant]
  8. PROCHLORPERAZINE MALEATE (PROCHLORPERAZINE MALEATE) (TABLETS) [Concomitant]
  9. CELEXA [Concomitant]
  10. BENADRYL/NYSTATIN/FLUOCINOLONE (ALL OTHER THERAPEUTIC PRODUCTS) (SOLUT [Concomitant]
  11. ASPIRIN [Concomitant]
  12. ALBUTEROL SULFATE (SALBUTAMOL SULFATE) (INHALANT) [Concomitant]
  13. MAG-OXIDE (MAGNESIUM OXIDE) (TABLETS) [Concomitant]
  14. REVLIMID [Suspect]
     Indication: MULTIPLE MYELOMA
     Dosage: 25 MG, DAILY FOR 14D, THEN OFF FOR 7D Q21D, PO 10 MG, DAILY X 14 DAYS, PO
     Route: 048
     Dates: start: 20110418, end: 20110801
  15. REVLIMID [Suspect]
     Indication: MULTIPLE MYELOMA
     Dosage: 25 MG, DAILY FOR 14D, THEN OFF FOR 7D Q21D, PO 10 MG, DAILY X 14 DAYS, PO
     Route: 048
     Dates: start: 20110824
  16. VELCADE [Suspect]
     Indication: MULTIPLE MYELOMA
     Dosage: 1.3 MG/M2, DAYS 1, 4, 8, 11 Q 21 DAYS, IV 1 MG/M2, DAYS 1, 4, 8, 11 Q 21 DAYS, IV
     Route: 042
     Dates: start: 20110418, end: 20110718
  17. VELCADE [Suspect]
     Indication: MULTIPLE MYELOMA
     Dosage: 1.3 MG/M2, DAYS 1, 4, 8, 11 Q 21 DAYS, IV 1 MG/M2, DAYS 1, 4, 8, 11 Q 21 DAYS, IV
     Route: 042
     Dates: start: 20110906
  18. DEXAMETHASONE [Concomitant]
  19. VICODIN [Concomitant]
  20. BACTRIM DS [Concomitant]
  21. LEVOTHYROXINE (LEVOTHYROXINE) (TABLETS) [Concomitant]
  22. TAMSULOSIN HCL (TAMSULOSIN HYDROCHLORIDE) (CAPSULES) [Concomitant]
  23. METOPROLOL (METOPROLOL) (TABLETS) [Concomitant]
  24. ALLOPURINOL [Concomitant]

REACTIONS (4)
  - DYSPNOEA [None]
  - FATIGUE [None]
  - PLATELET COUNT DECREASED [None]
  - CARDIAC FAILURE CONGESTIVE [None]
